FAERS Safety Report 8943778 (Version 1)
Quarter: 2012Q4

REPORT INFORMATION
  Report Type: 
  Country: FR (occurrence: FR)
  Receive Date: 20121203
  Receipt Date: 20121203
  Transmission Date: 20130627
  Serious: Yes (Hospitalization)
  Sender: FDA-Public Use
  Company Number: FR-GLAXOSMITHKLINE-B0846442A

PATIENT
  Age: 48 Year
  Sex: Female

DRUGS (9)
  1. ZOPHREN [Suspect]
     Indication: PRODUCT USED FOR UNKNOWN INDICATION
     Dosage: 8MG Unknown
     Route: 042
     Dates: start: 20120823, end: 20120828
  2. HOLOXAN [Suspect]
     Indication: NON-HODGKIN^S LYMPHOMA UNSPECIFIED HISTOLOGY AGGRESSIVE REFRACTORY
     Dosage: 3000MG See dosage text
     Route: 042
     Dates: start: 20120823, end: 20120828
  3. SOLUMEDROL(METHYLPREDNISOLONE SODIUM SUCCINATE) INFUSION [Suspect]
     Indication: NON-HODGKIN^S LYMPHOMA UNSPECIFIED HISTOLOGY AGGRESSIVE REFRACTORY
     Dosage: 100MG Per day
     Route: 042
     Dates: start: 20120823, end: 20120828
  4. PRIMPERAN [Suspect]
     Indication: PROPHYLAXIS
     Dosage: 80MG Per day
     Route: 042
     Dates: start: 20120823, end: 20120828
  5. UROMITEXAN [Suspect]
     Indication: PROPHYLAXIS
     Dosage: 3000MG Per day
     Route: 042
     Dates: start: 20120823, end: 20120828
  6. VINORELBINE [Suspect]
     Indication: NON-HODGKIN^S LYMPHOMA UNSPECIFIED HISTOLOGY AGGRESSIVE REFRACTORY
     Dosage: 30MG Per day
     Route: 042
     Dates: start: 20120823, end: 20120823
  7. GEMCITABINE [Suspect]
     Indication: NON-HODGKIN^S LYMPHOMA UNSPECIFIED HISTOLOGY AGGRESSIVE REFRACTORY
     Dosage: 1200MG Per day
     Route: 042
     Dates: start: 20120823, end: 20120823
  8. NEURONTIN [Concomitant]
     Indication: NEURALGIA
     Dosage: 250MG Twice per day
     Route: 048
  9. MORPHINE [Concomitant]
     Indication: CANCER PAIN
     Dosage: 140MG Per day
     Route: 042

REACTIONS (8)
  - Encephalopathy [Recovered/Resolved with Sequelae]
  - Psychomotor retardation [Recovered/Resolved with Sequelae]
  - Incoherent [Recovered/Resolved with Sequelae]
  - Dyskinesia [Recovered/Resolved with Sequelae]
  - Agitation [Unknown]
  - Pain [Unknown]
  - Neuropathy peripheral [Recovered/Resolved with Sequelae]
  - Muscular weakness [Recovered/Resolved with Sequelae]
